FAERS Safety Report 5604659-2 (Version None)
Quarter: 2008Q1

REPORT INFORMATION
  Report Type: 
  Country: None (occurrence: None)
  Receive Date: 20080124
  Receipt Date: 20080124
  Transmission Date: 20080703
  Serious: Yes (Hospitalization, Disabling)
  Sender: FDA-Public Use
  Company Number: None

PATIENT
  Age: 60 Year
  Sex: Female
  Weight: 59 kg

DRUGS (11)
  1. CHLORPROMAZINE [Suspect]
     Indication: BIPOLAR DISORDER
     Dosage: 175MG TWO DIVIDED DOSES PO
     Route: 048
  2. TRIHEXYPHENIDYL HCL [Suspect]
     Indication: SCHIZOPHRENIA
     Dosage: 2 MG TWICE DAILY PO
     Route: 048
     Dates: start: 20071120, end: 20071212
  3. PRAMIPEXOLE DIHYDROCHLORIDE [Concomitant]
  4. RASAGILINE [Concomitant]
  5. OMEPRAZOLE [Concomitant]
  6. CLONAZEPAM [Concomitant]
  7. CARBIDOPA AND LEVODOPA [Concomitant]
  8. DIPHENHYDRAMINE HCL [Concomitant]
  9. FLUTICASONE PROPIONATE [Concomitant]
  10. LORATIDINE/PSEUDOEPHEDRINE [Concomitant]
  11. MULTI-VITAMIN [Concomitant]

REACTIONS (6)
  - BALANCE DISORDER [None]
  - BLOOD CREATINE PHOSPHOKINASE INCREASED [None]
  - FALL [None]
  - NEUROLEPTIC MALIGNANT SYNDROME [None]
  - PARKINSON'S DISEASE [None]
  - PYREXIA [None]
